FAERS Safety Report 16630665 (Version 1)
Quarter: 2019Q3

REPORT INFORMATION
  Report Type: Spontaneous
  Country: SK (occurrence: SK)
  Receive Date: 20190725
  Receipt Date: 20190725
  Transmission Date: 20191004
  Serious: Yes (Other)
  Sender: FDA-Public Use
  Company Number: SK-TEVA-2019-SK-1080716

PATIENT
  Age: 68 Year
  Sex: Female

DRUGS (2)
  1. XEGEVA [Concomitant]
     Route: 058
  2. CAPECITABINE. [Suspect]
     Active Substance: CAPECITABINE
     Route: 065

REACTIONS (1)
  - Osteonecrosis of jaw [Unknown]
